FAERS Safety Report 8694008 (Version 3)
Quarter: 2012Q4

REPORT INFORMATION
  Report Type: 
  Country: US (occurrence: US)
  Receive Date: 20120731
  Receipt Date: 20121004
  Transmission Date: 20130627
  Serious: Yes (Hospitalization)
  Sender: FDA-Public Use
  Company Number: PHEH2012US014642

PATIENT
  Age: 75 Year
  Sex: Female

DRUGS (18)
  1. RECLAST [Suspect]
     Indication: OSTEOPOROSIS
     Route: 042
  2. RECLAST [Suspect]
     Route: 042
     Dates: start: 20120724
  3. GABAPENTIN [Concomitant]
     Indication: MULTIPLE SCLEROSIS
     Dosage: 400-600 mg twice a day
     Route: 048
  4. BACLOFEN [Concomitant]
     Indication: MULTIPLE SCLEROSIS
     Dosage: 10 mg, BID
     Route: 048
  5. LANSOPRAZOLE [Concomitant]
     Indication: GASTROOESOPHAGEAL REFLUX DISEASE
     Dosage: 30 mg, QD
     Route: 048
  6. FUROSEMIDE [Concomitant]
     Indication: DIURETIC THERAPY
     Dosage: 10 mg, QD
     Route: 048
  7. VERAPAMIL [Concomitant]
     Indication: CARDIAC DISORDER
     Dosage: 240 mg, QD
     Route: 048
  8. KLOR-CON [Concomitant]
     Indication: BLOOD ELECTROLYTES ABNORMAL
     Dosage: 20 MEq, BID
     Route: 048
  9. SINGULAIR [Concomitant]
     Indication: ASTHMA
     Dosage: 10 mg, QD
     Route: 048
  10. PREDNISONE [Concomitant]
     Indication: MULTIPLE SCLEROSIS
     Dosage: 10 mg, QOD every other day
     Route: 048
  11. CELEBREX [Concomitant]
     Indication: ARTHRITIS
     Dosage: 200 mg, every 3rd day
     Route: 048
  12. SYNTHROID [Concomitant]
     Indication: THYROID DISORDER
     Dosage: 137 mg, QD
     Route: 048
  13. VITAMIN D [Concomitant]
     Indication: OSTEOPOROSIS
     Dosage: 4000 IU, QD
     Route: 048
  14. BABY ASPIRIN [Concomitant]
     Dosage: 81 mg, QD
     Route: 048
  15. MULTIVITAMINS [Concomitant]
     Dosage: UNK UKN, QD
     Route: 048
  16. CALTRATE [Concomitant]
     Indication: OSTEOPOROSIS
     Dosage: 600 mg, BID
     Route: 048
  17. CALTRATE [Concomitant]
     Indication: BLOOD ELECTROLYTES ABNORMAL
  18. MAGNESIUM [Concomitant]
     Indication: BLOOD ELECTROLYTES ABNORMAL
     Dosage: 500 mg, BID
     Route: 048

REACTIONS (1)
  - Loss of consciousness [Unknown]
